FAERS Safety Report 16081062 (Version 1)
Quarter: 2019Q1

REPORT INFORMATION
  Report Type: Spontaneous
  Country: GB (occurrence: GB)
  Receive Date: 20190316
  Receipt Date: 20190316
  Transmission Date: 20190418
  Serious: Yes (Hospitalization, Disabling)
  Sender: FDA-Public Use
  Company Number: GB-TEVA-2019-GB-1023199

PATIENT
  Age: 85 Year
  Sex: Male
  Weight: 60.32 kg

DRUGS (7)
  1. ATORVASTATIN CALCIUM. [Suspect]
     Active Substance: ATORVASTATIN CALCIUM
     Route: 048
     Dates: start: 20180419, end: 20180906
  2. FLEXEZE [Concomitant]
  3. EVENING PRIMROSE OIL [Concomitant]
     Active Substance: EVENING PRIMROSE OIL\HERBALS
  4. MULTIVITAMIN [Concomitant]
     Active Substance: VITAMINS
  5. ACETYLSALICYLIC ACID [Concomitant]
     Active Substance: ASPIRIN
  6. BOOTS COD LIVER OIL [Concomitant]
  7. OMEPRAZOLE. [Concomitant]
     Active Substance: OMEPRAZOLE

REACTIONS (15)
  - Fatigue [Unknown]
  - Blood urine present [Unknown]
  - Vomiting [Recovering/Resolving]
  - Body temperature increased [Recovered/Resolved]
  - Protein urine present [Unknown]
  - Chromaturia [Unknown]
  - Asthenia [Recovering/Resolving]
  - Urinary tract infection [Unknown]
  - Abdominal pain [Recovering/Resolving]
  - Papilla of Vater stenosis [Unknown]
  - Cholecystitis infective [Unknown]
  - Chills [Recovered/Resolved]
  - Liver function test abnormal [Unknown]
  - Malaise [Unknown]
  - Jaundice [Unknown]

NARRATIVE: CASE EVENT DATE: 20180601
